FAERS Safety Report 14046483 (Version 8)
Quarter: 2018Q3

REPORT INFORMATION
  Report Type: Spontaneous
  Country: US (occurrence: US)
  Receive Date: 20171005
  Receipt Date: 20180830
  Transmission Date: 20181010
  Serious: Yes (Hospitalization, Other)
  Sender: FDA-Public Use
  Company Number: US-ACTELION-A-US2017-160412

PATIENT
  Age: 66 Year
  Sex: Female

DRUGS (20)
  1. ADEMPAS [Concomitant]
     Active Substance: RIOCIGUAT
     Dosage: 1 MG, TID
     Dates: start: 20170411
  2. PROMETHAZINE [Concomitant]
     Active Substance: PROMETHAZINE\PROMETHAZINE HYDROCHLORIDE
  3. PROTONIX [Concomitant]
     Active Substance: PANTOPRAZOLE SODIUM
     Dosage: UNK
     Dates: start: 20180106
  4. PULMICORT TURBUHALER [Concomitant]
     Active Substance: BUDESONIDE
  5. DIGOXIN. [Concomitant]
     Active Substance: DIGOXIN
     Dosage: UNK
     Dates: start: 20171125
  6. COREG [Concomitant]
     Active Substance: CARVEDILOL
     Dosage: UNK
     Dates: start: 20171125
  7. ELIQUIS [Suspect]
     Active Substance: APIXABAN
     Indication: PRODUCT USED FOR UNKNOWN INDICATION
     Route: 065
  8. ASPIRIN. [Concomitant]
     Active Substance: ASPIRIN
  9. ATORVASTATIN [Concomitant]
     Active Substance: ATORVASTATIN
     Dosage: UNK
     Dates: start: 20171125
  10. OPSUMIT [Suspect]
     Active Substance: MACITENTAN
     Indication: PULMONARY ARTERIAL HYPERTENSION
     Dosage: 10 MG, QD
     Route: 048
     Dates: start: 20170408
  11. BUMEX [Concomitant]
     Active Substance: BUMETANIDE
     Dosage: UNK
     Dates: start: 20171125
  12. GABAPENTIN. [Concomitant]
     Active Substance: GABAPENTIN
     Dosage: UNK
     Dates: start: 20171125
  13. LASIX [Concomitant]
     Active Substance: FUROSEMIDE
  14. MAGNESIUM CHLORIDE. [Concomitant]
     Active Substance: MAGNESIUM CHLORIDE
  15. POTASSIUM CHLORIDE. [Concomitant]
     Active Substance: POTASSIUM CHLORIDE
     Dosage: UNK
     Dates: start: 20180106
  16. XARELTO [Suspect]
     Active Substance: RIVAROXABAN
     Indication: PRODUCT USED FOR UNKNOWN INDICATION
     Route: 048
  17. FLORASTOR [Concomitant]
     Active Substance: SACCHAROMYCES CEREVISIAE
     Dosage: UNK
     Dates: start: 20171125
  18. APIXABAN [Concomitant]
     Active Substance: APIXABAN
     Dosage: UNK
     Dates: start: 20180203
  19. ADEMPAS [Concomitant]
     Active Substance: RIOCIGUAT
     Dosage: 1.5 MG, TID
     Route: 048
     Dates: start: 20180328, end: 20180410
  20. ALLOPURINOL. [Concomitant]
     Active Substance: ALLOPURINOL
     Dosage: UNK
     Dates: start: 20171125

REACTIONS (20)
  - Hypotension [Not Recovered/Not Resolved]
  - Rectal cancer [Unknown]
  - Anal cancer [Unknown]
  - Arteriovenous malformation [Recovered/Resolved]
  - Haemorrhoids [Recovered/Resolved]
  - Transfusion [Recovered/Resolved]
  - Diarrhoea [Recovered/Resolved]
  - Lung infiltration [Recovered/Resolved]
  - Anaemia [Recovered/Resolved]
  - Haemoglobin decreased [Recovered/Resolved]
  - Abdominal pain [Recovered/Resolved]
  - Vomiting [Recovered/Resolved]
  - Nausea [Not Recovered/Not Resolved]
  - Atrial flutter [Unknown]
  - Rectal haemorrhage [Not Recovered/Not Resolved]
  - Gastrointestinal haemorrhage [Recovered/Resolved]
  - Dehydration [Not Recovered/Not Resolved]
  - Clostridium difficile colitis [Recovered/Resolved]
  - Fatigue [Recovered/Resolved]
  - Headache [Not Recovered/Not Resolved]

NARRATIVE: CASE EVENT DATE: 201708
